FAERS Safety Report 9470283 (Version 1)
Quarter: 2013Q3

REPORT INFORMATION
  Report Type: Spontaneous
  Country: US (occurrence: None)
  Receive Date: 20130820
  Receipt Date: 20130820
  Transmission Date: 20140515
  Serious: Yes (Other)
  Sender: FDA-Public Use
  Company Number: None

PATIENT
  Age: 39 Year
  Sex: Female
  Weight: 103.87 kg

DRUGS (1)
  1. AMPHETAMINE SALTS [Suspect]
     Indication: ATTENTION DEFICIT/HYPERACTIVITY DISORDER
     Dosage: 2-3?ONE DAILY?TAKEN BY MOUTH?
     Route: 048
     Dates: start: 20130817, end: 20130818

REACTIONS (4)
  - Fatigue [None]
  - Somnolence [None]
  - Irritability [None]
  - Product substitution issue [None]
